FAERS Safety Report 10159985 (Version 1)
Quarter: 2014Q2

REPORT INFORMATION
  Report Type: Spontaneous
  Country: US (occurrence: US)
  Receive Date: 20140508
  Receipt Date: 20140508
  Transmission Date: 20141212
  Serious: Yes (Hospitalization, Other)
  Sender: FDA-Public Use
  Company Number: US-ABBVIE-14P-163-1232914-00

PATIENT
  Age: 69 Year
  Sex: Male

DRUGS (1)
  1. ANDROGEL [Suspect]
     Indication: PRODUCT USED FOR UNKNOWN INDICATION
     Route: 062

REACTIONS (14)
  - Pulmonary embolism [Unknown]
  - Pulmonary embolism [Unknown]
  - Tension [Unknown]
  - Pain [Unknown]
  - Injury [Unknown]
  - Injury [Unknown]
  - Emotional distress [Unknown]
  - Economic problem [Unknown]
  - Tension [Unknown]
  - Disease susceptibility [Unknown]
  - Anhedonia [Unknown]
  - Impaired self-care [Unknown]
  - Economic problem [Unknown]
  - Impaired work ability [Unknown]
